FAERS Safety Report 8398753-3 (Version None)
Quarter: 2012Q2

REPORT INFORMATION
  Report Type: 
  Country: None (occurrence: None)
  Receive Date: 20120531
  Receipt Date: 20120528
  Transmission Date: 20120825
  Serious: Yes (Death)
  Sender: FDA-Public Use
  Company Number: PHHY2012JP002735

PATIENT
  Sex: Male
  Weight: 86 kg

DRUGS (8)
  1. CANDESARTAN CILEXETIL [Concomitant]
     Indication: HYPERTENSION
     Route: 048
  2. WARFARIN SODIUM [Concomitant]
     Dosage: 1.5 MG, UNK
     Route: 048
  3. FUROSEMIDE [Concomitant]
     Indication: HYPERTENSION
     Dosage: 40 MG, UNK
     Dates: start: 20101229
  4. FUROSEMIDE [Concomitant]
     Dosage: 80 MG, UNK
     Route: 048
  5. EPLERENONE [Concomitant]
     Indication: HYPERTENSION
     Route: 048
     Dates: start: 20100309
  6. CRESTOR [Concomitant]
     Route: 048
  7. ALISKIREN [Suspect]
     Indication: HYPERTENSION
     Dates: start: 20100209
  8. WARFARIN SODIUM [Concomitant]
     Dosage: 2 MG, UNK
     Route: 048

REACTIONS (4)
  - CONDITION AGGRAVATED [None]
  - LUNG CANCER METASTATIC [None]
  - MALIGNANT PLEURAL EFFUSION [None]
  - DECREASED APPETITE [None]
